FAERS Safety Report 20219774 (Version 1)
Quarter: 2021Q4

REPORT INFORMATION
  Report Type: Spontaneous
  Country: US (occurrence: US)
  Receive Date: 20211222
  Receipt Date: 20211222
  Transmission Date: 20220303
  Serious: Yes (Other)
  Sender: FDA-Public Use
  Company Number: US-HERON THERAPEUTICS, INC-HRTX-2021-000712

PATIENT
  Age: 60 Year
  Sex: Male

DRUGS (1)
  1. ZYNRELEF [Suspect]
     Active Substance: BUPIVACAINE\MELOXICAM
     Indication: Knee arthroplasty
     Dosage: UNK, SINGLE
     Route: 026
     Dates: start: 20211118, end: 20211118

REACTIONS (1)
  - Pulmonary embolism [Unknown]
